FAERS Safety Report 16476736 (Version 1)
Quarter: 2019Q2

REPORT INFORMATION
  Report Type: Report from Study
  Country: US (occurrence: US)
  Receive Date: 20190626
  Receipt Date: 20190626
  Transmission Date: 20190711
  Serious: Yes (Other)
  Sender: FDA-Public Use
  Company Number: US-ROCHE-2342900

PATIENT
  Sex: Male

DRUGS (1)
  1. OCREVUS [Suspect]
     Active Substance: OCRELIZUMAB
     Indication: RELAPSING MULTIPLE SCLEROSIS
     Dosage: ONGOING :YES?DATE OF TREATMENT = 29/MAY/2018, 12/NOV/2018, 15/MAY/2019
     Route: 065

REACTIONS (1)
  - Urinary tract infection [Not Recovered/Not Resolved]
